FAERS Safety Report 7595144-X (Version None)
Quarter: 2011Q3

REPORT INFORMATION
  Report Type: 
  Country: None (occurrence: None)
  Receive Date: 20110707
  Receipt Date: 20110623
  Transmission Date: 20111222
  Serious: No
  Sender: FDA-Public Use
  Company Number: US-B.I. PHARMACEUTICALS,INC./RIDGEFIELD-2011-BP-16255BP

PATIENT
  Age: 87 Year
  Sex: Female

DRUGS (5)
  1. BACTRIM [Concomitant]
     Indication: PROPHYLAXIS
     Route: 048
  2. DOXYCYCLINE [Concomitant]
     Indication: PROPHYLAXIS
     Route: 048
  3. LOTREL [Concomitant]
     Indication: HYPERTENSION
     Route: 048
  4. DIGOXIN [Suspect]
     Indication: ATRIAL FIBRILLATION
     Dosage: 0.125 MG
     Route: 048
     Dates: start: 20110609
  5. PRADAXA [Suspect]
     Indication: ATRIAL FIBRILLATION
     Dosage: 150 MG
     Route: 048
     Dates: start: 20110609

REACTIONS (1)
  - ALOPECIA [None]
